FAERS Safety Report 23510166 (Version 4)
Quarter: 2024Q4

REPORT INFORMATION
  Report Type: Spontaneous
  Country: ES (occurrence: ES)
  Receive Date: 20240211
  Receipt Date: 20241028
  Transmission Date: 20250115
  Serious: Yes (Other)
  Sender: AUROBINDO
  Company Number: ES-ELI_LILLY_AND_COMPANY-ES202401011848

PATIENT
  Age: 50 Year
  Sex: Female

DRUGS (15)
  1. IBUPROFEN [Suspect]
     Active Substance: IBUPROFEN
     Indication: Bone pain
     Dosage: UNK
     Route: 065
  2. IBUPROFEN [Suspect]
     Active Substance: IBUPROFEN
     Indication: Asthenia
  3. IBUPROFEN [Suspect]
     Active Substance: IBUPROFEN
     Indication: Nasopharyngitis
  4. IBUPROFEN [Suspect]
     Active Substance: IBUPROFEN
     Indication: Influenza
  5. ACETAMINOPHEN [Suspect]
     Active Substance: ACETAMINOPHEN
     Indication: Asthenia
     Dosage: UNK
     Route: 065
  6. ACETAMINOPHEN [Suspect]
     Active Substance: ACETAMINOPHEN
     Indication: Nasopharyngitis
  7. ACETAMINOPHEN [Suspect]
     Active Substance: ACETAMINOPHEN
     Indication: Bone pain
  8. ACETAMINOPHEN [Suspect]
     Active Substance: ACETAMINOPHEN
     Indication: Influenza
  9. ABEMACICLIB [Suspect]
     Active Substance: ABEMACICLIB
     Indication: Breast cancer
     Dosage: 150 MILLIGRAM
     Route: 048
  10. ABEMACICLIB [Suspect]
     Active Substance: ABEMACICLIB
     Dosage: 150 MILLIGRAM
     Route: 048
     Dates: start: 20230923
  11. ABEMACICLIB [Suspect]
     Active Substance: ABEMACICLIB
     Dosage: 150 MILLIGRAM
     Route: 048
  12. ABEMACICLIB [Suspect]
     Active Substance: ABEMACICLIB
     Dosage: 150 MILLIGRAM
     Route: 048
     Dates: start: 202408
  13. LETROZOLE [Concomitant]
     Active Substance: LETROZOLE
     Indication: Product used for unknown indication
     Dosage: UNK
     Route: 065
  14. CALCIUM [Concomitant]
     Active Substance: CALCIUM
     Indication: Product used for unknown indication
     Dosage: UNK
     Route: 065
  15. VITAMIN D NOS [Concomitant]
     Active Substance: CHOLECALCIFEROL\ERGOCALCIFEROL
     Indication: Product used for unknown indication
     Dosage: UNK
     Route: 065

REACTIONS (15)
  - Transaminases increased [Recovered/Resolved]
  - Faeces hard [Unknown]
  - Influenza [Unknown]
  - Decreased immune responsiveness [Recovering/Resolving]
  - Asthenia [Recovering/Resolving]
  - Diarrhoea [Recovering/Resolving]
  - Neutrophil count decreased [Recovering/Resolving]
  - Fatigue [Recovering/Resolving]
  - Nail discolouration [Recovering/Resolving]
  - Bone pain [Recovering/Resolving]
  - Nasopharyngitis [Recovering/Resolving]
  - Viral infection [Unknown]
  - Abdominal pain [Recovering/Resolving]
  - Blood creatinine increased [Recovering/Resolving]
  - Onychoclasis [Recovering/Resolving]

NARRATIVE: CASE EVENT DATE: 20240110
